FAERS Safety Report 15785625 (Version 1)
Quarter: 2019Q1

REPORT INFORMATION
  Report Type: Spontaneous
  Country: US (occurrence: US)
  Receive Date: 20190102
  Receipt Date: 20190102
  Transmission Date: 20190417
  Serious: No
  Sender: FDA-Public Use
  Company Number: None

PATIENT
  Age: 68 Year
  Sex: Female
  Weight: 64.8 kg

DRUGS (10)
  1. XANAX [Concomitant]
     Active Substance: ALPRAZOLAM
  2. DULOXETINE. [Suspect]
     Active Substance: DULOXETINE
     Indication: PAIN
     Dosage: ?          QUANTITY:1 CAPSULE(S);?
     Route: 048
     Dates: start: 20181113, end: 20181114
  3. OMEGA 3 [Concomitant]
     Active Substance: OMEGA-3 FATTY ACIDS
  4. RESTASIS [Concomitant]
     Active Substance: CYCLOSPORINE
  5. TRAMADOL. [Concomitant]
     Active Substance: TRAMADOL
  6. TRICOR [Concomitant]
     Active Substance: FENOFIBRATE
  7. METOPROLOL. [Concomitant]
     Active Substance: METOPROLOL
  8. AMITRIPTYLINE [Concomitant]
     Active Substance: AMITRIPTYLINE
  9. VITAMIN B12 [Concomitant]
     Active Substance: CYANOCOBALAMIN
  10. VITAMIN D3 [Concomitant]
     Active Substance: CHOLECALCIFEROL

REACTIONS (5)
  - Paraesthesia [None]
  - Tinnitus [None]
  - Nightmare [None]
  - Abnormal dreams [None]
  - Headache [None]

NARRATIVE: CASE EVENT DATE: 20181113
